FAERS Safety Report 4840361-2 (Version None)
Quarter: 2005Q4

REPORT INFORMATION
  Report Type: 
  Country: None (occurrence: None)
  Receive Date: 20051025
  Receipt Date: 20050207
  Transmission Date: 20060501
  Serious: Yes (Other)
  Sender: FDA-Public Use
  Company Number: US-JNJFOC-20050202092

PATIENT
  Age: 24 Year
  Sex: Female

DRUGS (2)
  1. FLEXERIL [Suspect]
     Indication: MUSCLE STRAIN
     Dosage: 5 MG, 3 IN 1 DAY
     Dates: start: 20050101, end: 20050201
  2. TRAMADOL HCL [Suspect]
     Indication: MUSCLE STRAIN
     Dosage: 50 MG, ORAL
     Route: 048
     Dates: start: 20050101

REACTIONS (3)
  - CONVULSION [None]
  - PARAESTHESIA [None]
  - SYNCOPE [None]
